FAERS Safety Report 14661437 (Version 2)
Quarter: 2019Q1

REPORT INFORMATION
  Report Type: Spontaneous
  Country: US (occurrence: US)
  Receive Date: 20180320
  Receipt Date: 20190327
  Transmission Date: 20190417
  Serious: No
  Sender: FDA-Public Use
  Company Number: US-MYLANLABS-2018M1013921

PATIENT
  Age: 51 Year
  Sex: Female
  Weight: 64 kg

DRUGS (4)
  1. GABAPENTIN. [Suspect]
     Active Substance: GABAPENTIN
     Indication: NEURALGIA
     Dosage: 1 DF, BID, ONCE-TWICE DAILY
     Route: 048
  2. FENTANYL TRANSDERMAL SYSTEM [Suspect]
     Active Substance: FENTANYL
     Indication: SPINAL PAIN
     Dosage: 50 UNK, UNK
     Route: 062
  3. METHOCARBAMOL. [Suspect]
     Active Substance: METHOCARBAMOL
     Indication: NECK PAIN
     Dosage: 1 DF, QD
     Route: 048
  4. EXCEDRIN MIGRAINE [Suspect]
     Active Substance: ACETAMINOPHEN\ASPIRIN\CAFFEINE
     Indication: MIGRAINE
     Dosage: UNK, PRN
     Route: 048

REACTIONS (3)
  - Feeling cold [Not Recovered/Not Resolved]
  - Somnolence [Not Recovered/Not Resolved]
  - Off label use [Not Recovered/Not Resolved]
